FAERS Safety Report 18309212 (Version 1)
Quarter: 2020Q3

REPORT INFORMATION
  Report Type: Spontaneous
  Country: CA (occurrence: CA)
  Receive Date: 20200924
  Receipt Date: 20200924
  Transmission Date: 20201103
  Serious: Yes (Hospitalization)
  Sender: FDA-Public Use
  Company Number: CA-PFIZER INC-2020368269

PATIENT
  Age: 20 Year
  Sex: Male

DRUGS (2)
  1. METHOTREXATE SODIUM. [Suspect]
     Active Substance: METHOTREXATE SODIUM
     Dosage: 300 MG 1 EVERY 4 WEEKS
     Route: 058
  2. PREDNISONE. [Concomitant]
     Active Substance: PREDNISONE
     Dosage: UNK

REACTIONS (15)
  - Pain [Unknown]
  - Blood pressure increased [Unknown]
  - Heart rate increased [Unknown]
  - Skin discolouration [Unknown]
  - Pyrexia [Unknown]
  - Syncope [Unknown]
  - Off label use [Unknown]
  - Abdominal pain upper [Unknown]
  - Peripheral coldness [Unknown]
  - Urinary tract infection [Unknown]
  - Product use issue [Unknown]
  - Asthenia [Unknown]
  - Vomiting [Unknown]
  - Dizziness [Unknown]
  - Gait inability [Unknown]
